FAERS Safety Report 10944099 (Version 4)
Quarter: 2016Q4

REPORT INFORMATION
  Report Type: Report from Study
  Country: CA (occurrence: CA)
  Receive Date: 20150323
  Receipt Date: 20161027
  Transmission Date: 20170206
  Serious: Yes (Death, Other)
  Sender: FDA-Public Use
  Company Number: CA-ROCHE-1554105

PATIENT
  Age: 49 Year
  Sex: Female

DRUGS (16)
  1. PREDNISONE. [Concomitant]
     Active Substance: PREDNISONE
  2. ZOPICLONE [Concomitant]
     Active Substance: ZOPICLONE
     Dosage: AS REQUIRED
     Route: 065
  3. LORAZEPAM. [Concomitant]
     Active Substance: LORAZEPAM
  4. LOMOTIL (CANADA) [Concomitant]
     Dosage: AS REQUIRED
     Route: 065
  5. REMERON [Concomitant]
     Active Substance: MIRTAZAPINE
  6. LEVOTHYROXINE. [Concomitant]
     Active Substance: LEVOTHYROXINE
  7. METHYLPREDNISOLONE. [Concomitant]
     Active Substance: METHYLPREDNISOLONE
     Indication: PREMEDICATION
     Route: 042
     Dates: start: 20100111
  8. PARIET [Concomitant]
     Active Substance: RABEPRAZOLE SODIUM
  9. VOLTAREN [Concomitant]
     Active Substance: DICLOFENAC SODIUM
     Dosage: AS REQUIRED
     Route: 065
  10. IMURAN [Concomitant]
     Active Substance: AZATHIOPRINE
  11. RITUXAN [Suspect]
     Active Substance: RITUXIMAB
     Indication: RHEUMATOID ARTHRITIS
     Dosage: FREQUENCY: DAY 1, DAY 15
     Route: 042
     Dates: start: 20100111, end: 20100126
  12. DOMPERIDONE [Concomitant]
     Active Substance: DOMPERIDONE
  13. NASONEX [Concomitant]
     Active Substance: MOMETASONE FUROATE
  14. DIPHENHYDRAMINE HCL [Concomitant]
     Active Substance: DIPHENHYDRAMINE HYDROCHLORIDE
     Indication: PREMEDICATION
     Route: 048
     Dates: start: 20100111
  15. PLAQUENIL [Concomitant]
     Active Substance: HYDROXYCHLOROQUINE SULFATE
  16. HYDROMORPHONE [Concomitant]
     Active Substance: HYDROMORPHONE
     Dosage: AS REQUIRED
     Route: 065

REACTIONS (13)
  - Cognitive disorder [Unknown]
  - Generalised tonic-clonic seizure [Unknown]
  - Muscular weakness [Unknown]
  - Depression [Unknown]
  - Memory impairment [Unknown]
  - Intervertebral disc degeneration [Unknown]
  - Pulmonary fibrosis [Fatal]
  - Pneumonia aspiration [Fatal]
  - Dysphagia [Unknown]
  - Fall [Unknown]
  - Dysphonia [Unknown]
  - Malaise [Unknown]
  - Blood creatine phosphokinase increased [Unknown]

NARRATIVE: CASE EVENT DATE: 201002
